FAERS Safety Report 6283811-X (Version None)
Quarter: 2009Q3

REPORT INFORMATION
  Report Type: 
  Country: None (occurrence: None)
  Receive Date: 20090724
  Receipt Date: 20090714
  Transmission Date: 20100115
  Serious: Yes (Hospitalization, Other)
  Sender: FDA-Public Use
  Company Number: US-PFIZER INC-2009241977

PATIENT
  Sex: Female
  Weight: 83.9 kg

DRUGS (8)
  1. CHANTIX [Suspect]
     Indication: SMOKING CESSATION THERAPY
     Dosage: 1 MG, 2X/DAY
     Dates: start: 20080101, end: 20080601
  2. GEODON [Suspect]
     Indication: BIPOLAR I DISORDER
     Dosage: UNK
     Dates: start: 20070101, end: 20080601
  3. ABILIFY [Suspect]
     Indication: BIPOLAR I DISORDER
     Dosage: UNK
     Dates: start: 20080101
  4. CYMBALTA [Suspect]
     Indication: BIPOLAR I DISORDER
     Dates: start: 20080101
  5. ATENOLOL [Concomitant]
     Dosage: UNK
  6. MICARDIS HCT [Concomitant]
     Dosage: UNK
  7. TRAZODONE [Concomitant]
     Dosage: UNK
  8. KLONOPIN [Concomitant]

REACTIONS (4)
  - DEPRESSION [None]
  - ELECTROCARDIOGRAM QT PROLONGED [None]
  - GLUCOSE TOLERANCE IMPAIRED [None]
  - SUICIDAL IDEATION [None]
